FAERS Safety Report 17600100 (Version 1)
Quarter: 2020Q1

REPORT INFORMATION
  Report Type: Spontaneous
  Country: US (occurrence: US)
  Receive Date: 20200330
  Receipt Date: 20200330
  Transmission Date: 20200409
  Serious: Yes (Hospitalization)
  Sender: FDA-Public Use
  Company Number: US-BIOMARINAP-US-2020-129175

PATIENT
  Age: 19 Year
  Sex: Female

DRUGS (1)
  1. BRINEURA [Suspect]
     Active Substance: CERLIPONASE ALFA
     Indication: NEURONAL CEROID LIPOFUSCINOSIS
     Route: 020

REACTIONS (5)
  - CSF white blood cell count increased [Unknown]
  - CSF test abnormal [Unknown]
  - CSF culture positive [Unknown]
  - Device issue [Unknown]
  - Device related infection [Unknown]
